FAERS Safety Report 9436870 (Version 1)
Quarter: 2013Q3

REPORT INFORMATION
  Report Type: Spontaneous
  Country: US (occurrence: US)
  Receive Date: 20130802
  Receipt Date: 20130802
  Transmission Date: 20140515
  Serious: No
  Sender: FDA-Public Use
  Company Number: US-PFIZER INC-2013223929

PATIENT
  Sex: Male

DRUGS (1)
  1. GABAPENTIN [Suspect]
     Indication: PAIN
     Dosage: 300 MG, UNK

REACTIONS (1)
  - Drug effect incomplete [Unknown]
